FAERS Safety Report 7710487-4 (Version None)
Quarter: 2011Q3

REPORT INFORMATION
  Report Type: 
  Country: None (occurrence: None)
  Receive Date: 20110825
  Receipt Date: 20101130
  Transmission Date: 20111222
  Serious: No
  Sender: FDA-Public Use
  Company Number: US-TYCO HEALTHCARE/MALLINCKRODT-T201002379

PATIENT
  Sex: Female

DRUGS (2)
  1. STEROID [Concomitant]
     Indication: PAIN
  2. CONRAY [Suspect]
     Indication: ARTHROGRAM
     Dosage: 0.5 ML, SINGLE
     Dates: start: 20101116, end: 20101116

REACTIONS (3)
  - FLUSHING [None]
  - ERYTHEMA [None]
  - ASTHENIA [None]
